FAERS Safety Report 8906809 (Version 1)
Quarter: 2012Q4

REPORT INFORMATION
  Report Type: 
  Country: US (occurrence: US)
  Receive Date: 20121114
  Receipt Date: 20121114
  Transmission Date: 20130627
  Serious: No
  Sender: FDA-Public Use
  Company Number: US-009507513-1211USA003797

PATIENT
  Sex: Male
  Weight: 97.51 kg

DRUGS (5)
  1. JANUMET [Suspect]
     Indication: BLOOD GLUCOSE
     Dosage: 2 DF, qd
     Dates: start: 20120601
  2. PLAVIX [Concomitant]
  3. RAMIPRIL [Concomitant]
  4. ZOCOR [Concomitant]
  5. FLOMAX (MORNIFLUMATE) [Concomitant]

REACTIONS (1)
  - Weight decreased [Unknown]
